FAERS Safety Report 15777925 (Version 1)
Quarter: 2018Q4

REPORT INFORMATION
  Report Type: Report from Study
  Country: IN (occurrence: IN)
  Receive Date: 20181231
  Receipt Date: 20181231
  Transmission Date: 20190205
  Serious: Yes (Death)
  Sender: FDA-Public Use
  Company Number: PHHY2018IN083758

PATIENT
  Age: 21 Year
  Sex: Male

DRUGS (1)
  1. VYMADA [Suspect]
     Active Substance: SACUBITRIL\VALSARTAN
     Indication: CARDIAC FAILURE
     Dosage: 50 MG, BID
     Route: 048
     Dates: start: 20180821

REACTIONS (4)
  - Dyspnoea [Fatal]
  - Wrong technique in product usage process [Unknown]
  - Chest pain [Fatal]
  - Product prescribing error [Unknown]

NARRATIVE: CASE EVENT DATE: 20180821
